FAERS Safety Report 6273776-9 (Version None)
Quarter: 2009Q3

REPORT INFORMATION
  Report Type: 
  Country: None (occurrence: None)
  Receive Date: 20090720
  Receipt Date: 20090710
  Transmission Date: 20100115
  Serious: Yes (Other)
  Sender: FDA-Public Use
  Company Number: B0491701A

PATIENT
  Sex: Male
  Weight: 72.2 kg

DRUGS (4)
  1. KIVEXA [Suspect]
     Indication: HIV INFECTION
     Route: 048
     Dates: start: 20071001, end: 20071011
  2. EFAVIRENZ [Suspect]
     Indication: HIV INFECTION
     Dosage: 600MG PER DAY
     Route: 048
     Dates: start: 20071001
  3. ZOPICLONE [Concomitant]
     Dosage: 7.5MG PER DAY
     Route: 048
     Dates: start: 20071008, end: 20071022
  4. HALOPERIDOL [Concomitant]
     Dosage: 1.5MG PER DAY
     Route: 048
     Dates: start: 20071012, end: 20071012

REACTIONS (6)
  - DYSPNOEA [None]
  - EUPHORIC MOOD [None]
  - HYPERHIDROSIS [None]
  - HYPERSENSITIVITY [None]
  - RASH MACULAR [None]
  - SLEEP DISORDER [None]
